FAERS Safety Report 25891266 (Version 2)
Quarter: 2025Q4

REPORT INFORMATION
  Report Type: Report from Study
  Country: US (occurrence: US)
  Receive Date: 20251007
  Receipt Date: 20251015
  Transmission Date: 20260119
  Serious: Yes (Death)
  Sender: PFIZER
  Company Number: US-PFIZER INC-202500197756

PATIENT
  Age: 79 Year
  Sex: Male

DRUGS (3)
  1. VYNDAMAX [Suspect]
     Active Substance: TAFAMIDIS
     Dosage: UNK
  2. MORPHINE SULFATE [Suspect]
     Active Substance: MORPHINE SULFATE
  3. ATIVAN [Suspect]
     Active Substance: LORAZEPAM

REACTIONS (2)
  - Overdose [Fatal]
  - Procedural complication [Unknown]
